FAERS Safety Report 11083544 (Version 1)
Quarter: 2015Q2

REPORT INFORMATION
  Report Type: Spontaneous
  Country: GB (occurrence: GB)
  Receive Date: 20150501
  Receipt Date: 20150501
  Transmission Date: 20150821
  Serious: Yes (Hospitalization)
  Sender: FDA-Public Use
  Company Number: GB-PFIZER INC-2015145621

PATIENT
  Age: 95 Year
  Sex: Female

DRUGS (7)
  1. ALENDRONIC ACID [Concomitant]
     Active Substance: ALENDRONIC ACID
     Dosage: 70 MG, WEEKLY
  2. FELODIPINE. [Concomitant]
     Active Substance: FELODIPINE
     Dosage: 5 MG, 1X/DAY EVERY MORNING
  3. TOLTERODINE TARTRATE. [Suspect]
     Active Substance: TOLTERODINE TARTRATE
     Indication: URINARY INCONTINENCE
     Dosage: 4 MG, 1X/DAY EVERY MORNING
  4. CALFOVIT D3 [Concomitant]
     Dosage: 1 DF, 1X/DAY EVERY MORNING, SACHETS
  5. QUININE BISULPHATE [Concomitant]
     Dosage: 300 MG, 1X/DAY AT NIGHT
  6. COCODAMOL [Suspect]
     Active Substance: ACETAMINOPHEN\CODEINE PHOSPHATE
     Dosage: 8 MG/500 MG, 1-2 FOUR TIMES A DAY
  7. SIMVASTATIN. [Concomitant]
     Active Substance: SIMVASTATIN
     Dosage: 40 MG, 1X/DAY AT NIGHT

REACTIONS (6)
  - Agitation [Unknown]
  - Pain [Unknown]
  - Speech disorder [Unknown]
  - Urinary retention [Unknown]
  - Confusional state [Unknown]
  - Hallucination, visual [Unknown]
